FAERS Safety Report 20667762 (Version 5)
Quarter: 2023Q4

REPORT INFORMATION
  Report Type: Spontaneous
  Country: US (occurrence: US)
  Receive Date: 20220404
  Receipt Date: 20231110
  Transmission Date: 20240110
  Serious: Yes (Other)
  Sender: FDA-Public Use
  Company Number: US-JNJFOC-20220359419

PATIENT
  Age: 6 Decade
  Sex: Female

DRUGS (9)
  1. ELMIRON [Suspect]
     Active Substance: PENTOSAN POLYSULFATE SODIUM
     Indication: Cystitis interstitial
     Route: 048
  2. ELMIRON [Suspect]
     Active Substance: PENTOSAN POLYSULFATE SODIUM
     Route: 048
     Dates: start: 2005, end: 2016
  3. AMITRIPTYLINE [Concomitant]
     Active Substance: AMITRIPTYLINE
     Indication: Antidepressant therapy
     Dates: start: 2011
  4. ULTRAFLORA WOMEN^S [Concomitant]
     Indication: Probiotic therapy
     Dates: start: 2014
  5. TRAMADOL [Concomitant]
     Active Substance: TRAMADOL\TRAMADOL HYDROCHLORIDE
     Indication: Pain management
     Dates: start: 2014, end: 2016
  6. FLUTICASONE [Concomitant]
     Active Substance: FLUTICASONE
     Dates: start: 2011, end: 2015
  7. IMODIUM [Concomitant]
     Active Substance: LOPERAMIDE HYDROCHLORIDE
     Indication: Diarrhoea
     Dates: start: 2012, end: 2015
  8. PROBIOTICS NOS [Concomitant]
     Active Substance: PROBIOTICS NOS
  9. TYLENOL [Concomitant]
     Active Substance: ACETAMINOPHEN
     Indication: Analgesic therapy

REACTIONS (4)
  - Neovascular age-related macular degeneration [Unknown]
  - Dry age-related macular degeneration [Unknown]
  - Maculopathy [Unknown]
  - Off label use [Unknown]

NARRATIVE: CASE EVENT DATE: 20050101
